FAERS Safety Report 5994791-6 (Version None)
Quarter: 2008Q4

REPORT INFORMATION
  Report Type: 
  Country: None (occurrence: None)
  Receive Date: 20081212
  Receipt Date: 20080912
  Transmission Date: 20090506
  Serious: No
  Sender: FDA-Public Use
  Company Number: US-ABBOTT-08P-163-0476233-00

PATIENT
  Sex: Female
  Weight: 80.812 kg

DRUGS (13)
  1. HUMIRA [Suspect]
     Indication: RHEUMATOID ARTHRITIS
     Route: 058
     Dates: start: 20070101
  2. METHOTREXATE [Concomitant]
     Indication: RHEUMATOID ARTHRITIS
     Route: 048
     Dates: start: 20050301
  3. PREDNISONE TAB [Concomitant]
     Indication: RHEUMATOID ARTHRITIS
     Route: 048
     Dates: start: 20050301
  4. CELECOXIB [Concomitant]
     Indication: RHEUMATOID ARTHRITIS
     Route: 048
  5. OMEPRAZOLE [Concomitant]
     Indication: GASTROOESOPHAGEAL REFLUX DISEASE
     Route: 048
  6. SIMVASTATIN [Concomitant]
     Indication: BLOOD CHOLESTEROL INCREASED
     Route: 048
  7. ALPRAZOLAM [Concomitant]
     Indication: ANXIETY
     Route: 048
  8. PRINZIDE [Concomitant]
     Indication: HYPERTENSION
     Dosage: 20MG/12.5MG DAILY
     Route: 048
  9. FLUTICASONE PROPIONATE [Concomitant]
     Indication: HYPERSENSITIVITY
     Dosage: AS NEEDED
     Route: 061
  10. RALOXIFENE HCL [Concomitant]
     Indication: MINERAL SUPPLEMENTATION
     Route: 048
  11. VITAMINS [Concomitant]
     Indication: VITAMIN SUPPLEMENTATION
     Route: 048
  12. ASTELINE NASAL SPRAY [Concomitant]
     Indication: HYPERSENSITIVITY
     Route: 061
  13. BENADRYL [Concomitant]
     Indication: HYPERSENSITIVITY
     Dosage: 20-50 MG DAILY
     Route: 048

REACTIONS (6)
  - ARTHRALGIA [None]
  - BACK PAIN [None]
  - BRONCHITIS [None]
  - COUGH [None]
  - DYSPNOEA [None]
  - PAIN IN EXTREMITY [None]
